FAERS Safety Report 8812114 (Version 2)
Quarter: 2012Q4

REPORT INFORMATION
  Report Type: Spontaneous
  Country: US (occurrence: None)
  Receive Date: 20120925
  Receipt Date: 20121004
  Transmission Date: 20130627
  Serious: Yes (Other)
  Sender: FDA-Public Use
  Company Number: 2012SA066226

PATIENT
  Age: 31 Year
  Sex: Female

DRUGS (1)
  1. ICY HOT [Suspect]
     Indication: BACK PAIN
     Route: 061
     Dates: start: 20120831

REACTIONS (2)
  - Chemical burn of skin [None]
  - Hypersensitivity [None]
